FAERS Safety Report 14782154 (Version 2)
Quarter: 2025Q1

REPORT INFORMATION
  Report Type: Report from Study
  Country: US (occurrence: US)
  Receive Date: 20180420
  Receipt Date: 20250315
  Transmission Date: 20250409
  Serious: Yes (Hospitalization)
  Sender: ROCHE
  Company Number: US-ROCHE-1950426

PATIENT
  Age: 49 Year
  Sex: Male
  Weight: 97.07 kg

DRUGS (19)
  1. CELLCEPT [Suspect]
     Active Substance: MYCOPHENOLATE MOFETIL
     Indication: Product used for unknown indication
     Dosage: 3 TABLET TWICE A DAY
     Route: 048
     Dates: start: 201702
  2. CELLCEPT [Suspect]
     Active Substance: MYCOPHENOLATE MOFETIL
     Route: 048
  3. CELLCEPT [Suspect]
     Active Substance: MYCOPHENOLATE MOFETIL
     Route: 048
     Dates: start: 20170410
  4. ATROPINE [Concomitant]
     Active Substance: ATROPINE
     Route: 031
  5. ATROPINE [Concomitant]
     Active Substance: ATROPINE
     Dosage: INSTILL DROP IN LEFT EYE
     Route: 031
     Dates: start: 20170125
  6. COMBIGAN [Concomitant]
     Active Substance: BRIMONIDINE TARTRATE\TIMOLOL MALEATE
     Dosage: ONGOING: YES
     Route: 031
  7. COMBIGAN [Concomitant]
     Active Substance: BRIMONIDINE TARTRATE\TIMOLOL MALEATE
     Dosage: INSTILL DROP IN RIGHT EYE
     Route: 031
     Dates: start: 20170125
  8. CYMBALTA [Concomitant]
     Active Substance: DULOXETINE HYDROCHLORIDE
     Dosage: ONGOING: YES
     Route: 048
     Dates: start: 20170228
  9. DUREZOL [Concomitant]
     Active Substance: DIFLUPREDNATE
     Route: 031
  10. LISINOPRIL [Concomitant]
     Active Substance: LISINOPRIL
     Dosage: ONGOING: YES
     Route: 031
  11. LISINOPRIL [Concomitant]
     Active Substance: LISINOPRIL
     Dosage: ONGOING: YES
     Route: 048
  12. OMEPRAZOLE [Concomitant]
     Active Substance: OMEPRAZOLE
     Dosage: ONGOING: YES
     Route: 048
     Dates: start: 20170315
  13. SYNTHROID [Concomitant]
     Active Substance: LEVOTHYROXINE SODIUM
     Route: 048
  14. SYNTHROID [Concomitant]
     Active Substance: LEVOTHYROXINE SODIUM
     Route: 048
  15. AMOXICILLIN [Concomitant]
     Active Substance: AMOXICILLIN
     Route: 048
  16. FLOVENT [Concomitant]
     Active Substance: FLUTICASONE PROPIONATE
     Dosage: INHALE 3 PUFFS
     Route: 045
     Dates: start: 20170228
  17. NIFEDIPINE [Concomitant]
     Active Substance: NIFEDIPINE
     Route: 048
     Dates: start: 20170125
  18. METOLAZONE [Concomitant]
     Active Substance: METOLAZONE
     Route: 048
  19. MELOXICAM [Concomitant]
     Active Substance: MELOXICAM
     Route: 048

REACTIONS (8)
  - Abdominal wall pain [Unknown]
  - Hyponatraemia [Unknown]
  - Oedema [Unknown]
  - Visual impairment [Unknown]
  - Nocturia [Unknown]
  - Glaucoma [Unknown]
  - Cough [Unknown]
  - Dyspnoea [Unknown]

NARRATIVE: CASE EVENT DATE: 20170201
